FAERS Safety Report 8532866-8 (Version None)
Quarter: 2012Q3

REPORT INFORMATION
  Report Type: 
  Country: None (occurrence: None)
  Receive Date: 20120724
  Receipt Date: 20120720
  Transmission Date: 20120928
  Serious: Yes (Other)
  Sender: FDA-Public Use
  Company Number: US-BAYER-2012-073426

PATIENT
  Age: 50 Year
  Sex: Female
  Weight: 77 kg

DRUGS (8)
  1. MULTIVITAMIN PREPARATION + MINERAL SUPPLEMENT [Concomitant]
  2. VICODIN [Concomitant]
     Dosage: UNK
  3. DETROL [Concomitant]
     Dosage: 1 MG, UNK
  4. CYMBALTA [Concomitant]
     Dosage: 20 MG, UNK
  5. PROVIGIL [Concomitant]
     Dosage: 100 MG, UNK
  6. SIMVASTATIN [Concomitant]
     Dosage: 10 MG, UNK
  7. BETASERON [Suspect]
     Dosage: .25 MG, QOD
     Route: 058
  8. AMOXICILLIN [Concomitant]
     Dosage: 250 MG, UNK

REACTIONS (1)
  - FOOT OPERATION [None]
